FAERS Safety Report 15843225 (Version 3)
Quarter: 2019Q1

REPORT INFORMATION
  Report Type: Spontaneous
  Country: US (occurrence: US)
  Receive Date: 20190118
  Receipt Date: 20190322
  Transmission Date: 20190417
  Serious: Yes (Hospitalization)
  Sender: FDA-Public Use
  Company Number: US-STRONGBRIDGE BIOPHARMA-2019-STR-000012

PATIENT
  Age: 56 Year
  Sex: Female

DRUGS (1)
  1. KEVEYIS [Suspect]
     Active Substance: DICHLORPHENAMIDE
     Indication: FAMILIAL PERIODIC PARALYSIS
     Dosage: 50 MG TWICE DAILY
     Route: 048
     Dates: start: 20181207, end: 20190225

REACTIONS (5)
  - Nephrolithiasis [Recovered/Resolved]
  - Abdominal discomfort [Recovered/Resolved]
  - Prescribed underdose [Unknown]
  - Gastrooesophageal reflux disease [Recovered/Resolved]
  - Influenza [Recovering/Resolving]

NARRATIVE: CASE EVENT DATE: 2019
